FAERS Safety Report 6715897-X (Version None)
Quarter: 2010Q2

REPORT INFORMATION
  Report Type: 
  Country: None (occurrence: None)
  Receive Date: 20100507
  Receipt Date: 20100426
  Transmission Date: 20101027
  Serious: Yes (Hospitalization, Other)
  Sender: FDA-Public Use
  Company Number: PHHY2010US24398

PATIENT
  Sex: Male
  Weight: 43 kg

DRUGS (2)
  1. EXJADE [Suspect]
     Indication: SICKLE CELL ANAEMIA
     Dosage: 1750 MG, QD
     Route: 048
     Dates: start: 20100316
  2. EXJADE [Suspect]
     Dosage: 1000 MG, DAILY

REACTIONS (4)
  - HYPERTENSION [None]
  - PAIN [None]
  - PRIAPISM [None]
  - SICKLE CELL ANAEMIA WITH CRISIS [None]
